FAERS Safety Report 6618167-3 (Version None)
Quarter: 2010Q1

REPORT INFORMATION
  Report Type: 
  Country: None (occurrence: None)
  Receive Date: 20100302
  Receipt Date: 20100217
  Transmission Date: 20100710
  Serious: Yes (Hospitalization)
  Sender: FDA-Public Use
  Company Number: WAES 0909USA01068

PATIENT
  Age: 75 Year
  Sex: Female

DRUGS (8)
  1. FOSAMAX [Suspect]
     Indication: OSTEOPOROSIS
     Dosage: 35 MG/WKY PO; 35 MG/WKY; 35 MG/WKY; 35 MG/WKY
     Route: 048
     Dates: start: 20090518, end: 20090901
  2. FOSAMAX [Suspect]
     Indication: OSTEOPOROSIS
     Dosage: 35 MG/WKY PO; 35 MG/WKY; 35 MG/WKY; 35 MG/WKY
     Route: 048
     Dates: start: 20090922, end: 20090922
  3. FOSAMAX [Suspect]
     Indication: OSTEOPOROSIS
     Dosage: 35 MG/WKY PO; 35 MG/WKY; 35 MG/WKY; 35 MG/WKY
     Route: 048
     Dates: start: 20090928, end: 20090928
  4. FOSAMAX [Suspect]
     Indication: OSTEOPOROSIS
     Dosage: 35 MG/WKY PO; 35 MG/WKY; 35 MG/WKY; 35 MG/WKY
     Route: 048
     Dates: start: 20090916
  5. TAB NEW CALCICHEW D3 (CALCIUM CARBONATE (+) CH [Suspect]
     Indication: OSTEOPOROSIS
     Dosage: 2 DOSE/DAILY PO; 2 DOSE/DAILY PO;
     Route: 048
     Dates: start: 20090415, end: 20090906
  6. TAB NEW CALCICHEW D3 (CALCIUM CARBONATE (+) CH [Suspect]
     Indication: OSTEOPOROSIS
     Dosage: 2 DOSE/DAILY PO; 2 DOSE/DAILY PO;
     Route: 048
     Dates: start: 20090916
  7. DIOVAN [Suspect]
     Indication: HYPERTENSION
     Dosage: 40 MG/DAILY; 80 MG/DAILY PO
     Route: 048
     Dates: start: 20080219, end: 20090907
  8. DIOVAN [Suspect]
     Indication: HYPERTENSION
     Dosage: 40 MG/DAILY; 80 MG/DAILY PO
     Route: 048
     Dates: start: 20090916

REACTIONS (3)
  - ACCIDENTAL OVERDOSE [None]
  - ENTEROCOLITIS [None]
  - INAPPROPRIATE SCHEDULE OF DRUG ADMINISTRATION [None]
